FAERS Safety Report 5865214-2 (Version None)
Quarter: 2008Q3

REPORT INFORMATION
  Report Type: 
  Country: None (occurrence: None)
  Receive Date: 20080829
  Receipt Date: 20080819
  Transmission Date: 20090109
  Serious: Yes (Hospitalization)
  Sender: FDA-Public Use
  Company Number: B0533672A

PATIENT
  Age: 77 Year
  Sex: Female

DRUGS (8)
  1. ARIXTRA [Suspect]
     Indication: DRUG USE FOR UNKNOWN INDICATION
     Route: 058
     Dates: start: 20080714, end: 20080718
  2. LOVENOX [Suspect]
     Indication: DRUG USE FOR UNKNOWN INDICATION
     Dosage: .4ML PER DAY
     Route: 042
     Dates: start: 20080509, end: 20080714
  3. ORAMORPH SR [Concomitant]
     Route: 065
  4. NEXIUM [Concomitant]
     Route: 065
  5. LEVOTHYROX [Concomitant]
     Route: 065
  6. MOTILIUM [Concomitant]
     Route: 065
  7. KALEORID [Concomitant]
     Route: 065
  8. ASPIRIN [Concomitant]
     Route: 065

REACTIONS (5)
  - AGRANULOCYTOSIS [None]
  - ANAEMIA [None]
  - LEUKOPENIA [None]
  - NEUTROPENIA [None]
  - THROMBOCYTOPENIA [None]
